FAERS Safety Report 13580209 (Version 1)
Quarter: 2017Q2

REPORT INFORMATION
  Report Type: Spontaneous
  Country: IT (occurrence: IT)
  Receive Date: 20170525
  Receipt Date: 20170525
  Transmission Date: 20170830
  Serious: Yes (Hospitalization)
  Sender: FDA-Public Use
  Company Number: IT-009507513-1705USA008807

PATIENT
  Age: 38 Year
  Sex: Female

DRUGS (2)
  1. CARBIDOPA (+) LEVODOPA [Suspect]
     Active Substance: CARBIDOPA\LEVODOPA
     Indication: PARKINSON^S DISEASE
     Dosage: LEVODOPA 100 MG/CARBIDOPA 25 MG 3 TIMES DAILY
     Route: 048
  2. BENSERAZIDE HYDROCHLORIDE (+) LEVODOPA [Suspect]
     Active Substance: BENSERAZIDE\LEVODOPA
     Indication: PARKINSON^S DISEASE
     Dosage: LEVODOPA 100MG/BENSERAZIDE 25 MG, DAILY

REACTIONS (3)
  - Maternal exposure during pregnancy [Recovered/Resolved]
  - Injury [Unknown]
  - Drug ineffective [Unknown]
